FAERS Safety Report 18653512 (Version 1)
Quarter: 2020Q4

REPORT INFORMATION
  Report Type: Spontaneous
  Country: US (occurrence: US)
  Receive Date: 20201222
  Receipt Date: 20201222
  Transmission Date: 20210114
  Serious: No
  Sender: FDA-Public Use
  Company Number: None

PATIENT
  Sex: Female

DRUGS (16)
  1. AMITRIPTYLINE [Concomitant]
     Active Substance: AMITRIPTYLINE
     Dates: start: 2013, end: 2020
  2. PROVIGIL [Concomitant]
     Active Substance: MODAFINIL
  3. FLEXERIL [Concomitant]
     Active Substance: CYCLOBENZAPRINE HYDROCHLORIDE
  4. WELLBUTRIN [Concomitant]
     Active Substance: BUPROPION HYDROCHLORIDE
  5. FIORICET [Concomitant]
     Active Substance: ACETAMINOPHEN\BUTALBITAL\CAFFEINE
  6. BUTRANS [Suspect]
     Active Substance: BUPRENORPHINE
     Indication: FIBROMYALGIA
  7. MORPHINE SULPHATE [Concomitant]
     Active Substance: MORPHINE SULFATE
     Dates: start: 2015
  8. VOLTAREN [Concomitant]
     Active Substance: DICLOFENAC SODIUM
     Dates: start: 2015, end: 2019
  9. LYRICA [Concomitant]
     Active Substance: PREGABALIN
     Dates: start: 2017, end: 2018
  10. BUTRANS [Suspect]
     Active Substance: BUPRENORPHINE
     Indication: CHRONIC FATIGUE SYNDROME
  11. FENTYNL PATCHES [Concomitant]
     Dates: start: 201601
  12. ROBAXIN [Concomitant]
     Active Substance: METHOCARBAMOL
  13. BUTRANS [Suspect]
     Active Substance: BUPRENORPHINE
     Indication: MIGRAINE
  14. CYMBALTA [Concomitant]
     Active Substance: DULOXETINE HYDROCHLORIDE
     Dates: start: 2010, end: 2019
  15. EFFEXOR [Concomitant]
     Active Substance: VENLAFAXINE HYDROCHLORIDE
  16. NALTREXONE (COMPOUND) [Concomitant]

REACTIONS (6)
  - Urticaria [None]
  - Product substitution issue [None]
  - Drug ineffective [None]
  - Application site swelling [None]
  - Application site pruritus [None]
  - Application site pain [None]
